FAERS Safety Report 12524665 (Version 1)
Quarter: 2016Q3

REPORT INFORMATION
  Report Type: Report from Study
  Country: US (occurrence: US)
  Receive Date: 20160704
  Receipt Date: 20160704
  Transmission Date: 20161109
  Serious: Yes (Other)
  Sender: FDA-Public Use
  Company Number: US-ABBVIE-16K-163-1665472-00

PATIENT
  Sex: Male
  Weight: 102.15 kg

DRUGS (2)
  1. HUMIRA [Suspect]
     Active Substance: ADALIMUMAB
     Route: 058
     Dates: end: 201605
  2. HUMIRA [Suspect]
     Active Substance: ADALIMUMAB
     Indication: ANKYLOSING SPONDYLITIS
     Route: 058

REACTIONS (6)
  - Influenza [Recovered/Resolved]
  - Drug ineffective [Unknown]
  - Ligament sprain [Unknown]
  - Ankylosing spondylitis [Unknown]
  - Pain [Unknown]
  - Ligament rupture [Unknown]

NARRATIVE: CASE EVENT DATE: 2015
